FAERS Safety Report 17454387 (Version 2)
Quarter: 2020Q1

REPORT INFORMATION
  Report Type: Spontaneous
  Country: US (occurrence: US)
  Receive Date: 20200225
  Receipt Date: 20200227
  Transmission Date: 20200409
  Serious: Yes (Other)
  Sender: FDA-Public Use
  Company Number: US-CIPLA LTD.-2020US01292

PATIENT

DRUGS (4)
  1. OXALIPLATIN. [Suspect]
     Active Substance: OXALIPLATIN
     Indication: COLON CANCER
     Dosage: 85 MG/M^2, EVERY 2 WEEKS (FOLFOX-CETUX REGIMEN, 6 CYCLES)
     Route: 065
  2. FLUOROURACIL. [Concomitant]
     Active Substance: FLUOROURACIL
     Indication: COLON CANCER
     Dosage: UNK, FOLFOX-CETUX REGIMEN, 6 CYCLES
     Route: 065
  3. LEUCOVORIN [FOLINIC ACID] [Concomitant]
     Active Substance: LEUCOVORIN
     Indication: COLON CANCER
     Dosage: UNK, FOLFOX-CETUX REGIMEN, 6 CYCLES
     Route: 065
  4. CETUXIMAB. [Concomitant]
     Active Substance: CETUXIMAB
     Indication: COLON CANCER
     Dosage: UNK, FOLFOX-CETUX REGIMEN, 6 CYCLES
     Route: 065

REACTIONS (2)
  - Neurotoxicity [Unknown]
  - Neuropathy peripheral [Unknown]
